FAERS Safety Report 17606115 (Version 1)
Quarter: 2020Q1

REPORT INFORMATION
  Report Type: Spontaneous
  Country: US (occurrence: US)
  Receive Date: 20200331
  Receipt Date: 20200331
  Transmission Date: 20200409
  Serious: No
  Sender: FDA-Public Use
  Company Number: US-GALDERMA-US19069190

PATIENT
  Age: 11 Year
  Sex: Female

DRUGS (7)
  1. PROACTIV MD DEEP CLEANSING FACE WASH [Concomitant]
     Active Substance: COSMETICS
     Indication: SEBORRHOEA
     Route: 061
     Dates: start: 20191019, end: 20191024
  2. PROACTIV DEEP CLEANSING WASH [Concomitant]
     Active Substance: SALICYLIC ACID
     Indication: SEBORRHOEA
     Route: 061
     Dates: start: 20191019, end: 20191024
  3. PROACTIV GREEN TEA MOISTURIZER [Concomitant]
     Active Substance: COSMETICS
     Indication: SEBORRHOEA
     Route: 061
     Dates: start: 20191019, end: 20191024
  4. PROACTIV ACNE BODY WIPES [Concomitant]
     Active Substance: SALICYLIC ACID
     Indication: SEBORRHOEA
     Route: 061
     Dates: start: 20191019, end: 20191024
  5. PROACTIV MD ADAPALENE ACNE TREATMENT [Suspect]
     Active Substance: ADAPALENE
     Indication: SEBORRHOEA
     Dosage: 0.1%
     Route: 061
     Dates: start: 20191019, end: 20191024
  6. PROACTIV MD DAILY OIL CONTROL SPF 30 [Suspect]
     Active Substance: AVOBENZONE\OCTISALATE\OCTOCRYLENE
     Indication: SEBORRHOEA
     Route: 061
     Dates: start: 20191019, end: 20191024
  7. PROACTIV REDNESS RELIEF SERUM [Concomitant]
     Indication: SEBORRHOEA
     Route: 061
     Dates: start: 20191019, end: 20191024

REACTIONS (6)
  - Dry skin [Recovering/Resolving]
  - Acne [Recovering/Resolving]
  - Product use in unapproved indication [Recovered/Resolved]
  - Product use issue [Recovered/Resolved]
  - Inappropriate schedule of product administration [Recovered/Resolved]
  - Overdose [Recovered/Resolved]

NARRATIVE: CASE EVENT DATE: 20191019
